FAERS Safety Report 6454165-0 (Version None)
Quarter: 2009Q4

REPORT INFORMATION
  Report Type: 
  Country: None (occurrence: None)
  Receive Date: 20091124
  Receipt Date: 20091116
  Transmission Date: 20100525
  Serious: Yes (Hospitalization)
  Sender: FDA-Public Use
  Company Number: GXKR2009IT12603

PATIENT
  Sex: Female

DRUGS (1)
  1. CLARITHROMYCIN [Suspect]
     Route: 065

REACTIONS (6)
  - BRADYCARDIA [None]
  - CHILLS [None]
  - ERYTHEMA [None]
  - GENERALISED OEDEMA [None]
  - PARAESTHESIA [None]
  - PRURITUS GENERALISED [None]
